FAERS Safety Report 7402421-1 (Version None)
Quarter: 2011Q2

REPORT INFORMATION
  Report Type: 
  Country: None (occurrence: None)
  Receive Date: 20110408
  Receipt Date: 20110404
  Transmission Date: 20111010
  Serious: Yes (Death, Hospitalization, Other)
  Sender: FDA-Public Use
  Company Number: AR-BRISTOL-MYERS SQUIBB COMPANY-15531197

PATIENT
  Age: 57 Year
  Sex: Female

DRUGS (7)
  1. VITAMIN B1 TAB [Concomitant]
     Indication: PARAESTHESIA
  2. VITAMIN B6 [Concomitant]
     Indication: PARAESTHESIA
  3. ZOLEDRONIC ACID [Suspect]
     Route: 042
     Dates: start: 20080905
  4. FOLIC ACID [Concomitant]
     Indication: ANAEMIA
  5. VITAMIN B-12 [Concomitant]
     Indication: PARAESTHESIA
  6. CAPECITABINE [Suspect]
     Dosage: 1 DF = 7TABS,2G/M2
     Route: 048
     Dates: start: 20080905
  7. IXABEPILONE [Suspect]
     Indication: BREAST CANCER
     Dosage: 40MG/M2
     Route: 042
     Dates: start: 20080905

REACTIONS (2)
  - SEPTIC SHOCK [None]
  - FEBRILE NEUTROPENIA [None]
